FAERS Safety Report 5845803-1 (Version None)
Quarter: 2008Q3

REPORT INFORMATION
  Report Type: 
  Country: None (occurrence: None)
  Receive Date: 20080814
  Receipt Date: 20080805
  Transmission Date: 20090109
  Serious: Yes (Hospitalization)
  Sender: FDA-Public Use
  Company Number: JP-ELI_LILLY_AND_COMPANY-JP200808001162

PATIENT
  Age: 66 Year
  Sex: Male

DRUGS (1)
  1. HUMALOG [Suspect]
     Dosage: UNK, UNK
     Route: 058

REACTIONS (2)
  - DIPLOPIA [None]
  - VOMITING [None]
